FAERS Safety Report 5406494-7 (Version None)
Quarter: 2007Q3

REPORT INFORMATION
  Report Type: 
  Country: None (occurrence: None)
  Receive Date: 20070806
  Receipt Date: 20070725
  Transmission Date: 20080115
  Serious: Yes (Other)
  Sender: FDA-Public Use
  Company Number: US-PFIZER INC-2007062659

PATIENT
  Sex: Male
  Weight: 110.2 kg

DRUGS (4)
  1. LIPITOR [Suspect]
     Indication: BLOOD CHOLESTEROL INCREASED
     Dates: start: 20030101, end: 20070724
  2. HYTRIN [Concomitant]
  3. DARIFENACIN [Concomitant]
  4. CHOLESTYRAMINE [Concomitant]

REACTIONS (5)
  - BACK PAIN [None]
  - BLOOD TRIGLYCERIDES INCREASED [None]
  - GASTRIC DISORDER [None]
  - HYPERTENSION [None]
  - PAIN IN EXTREMITY [None]
